FAERS Safety Report 10763933 (Version 1)
Quarter: 2015Q1

REPORT INFORMATION
  Report Type: Report from Study
  Country: US (occurrence: US)
  Receive Date: 20150204
  Receipt Date: 20150204
  Transmission Date: 20150721
  Serious: Yes (Hospitalization)
  Sender: FDA-Public Use
  Company Number: US-ACTELION-A-NJ2015-112250

PATIENT
  Age: 66 Year
  Sex: Male

DRUGS (2)
  1. VENTAVIS [Suspect]
     Active Substance: ILOPROST
     Indication: PULMONARY ARTERIAL HYPERTENSION
     Dosage: 5 MCG, 6XDAY
     Route: 055
     Dates: start: 20141107, end: 201412
  2. VENTAVIS [Suspect]
     Active Substance: ILOPROST
     Dosage: 5 MCG, 6XDAY
     Route: 055
     Dates: start: 201501

REACTIONS (5)
  - Hypotension [Recovering/Resolving]
  - Prostatomegaly [Recovering/Resolving]
  - Bladder catheterisation [Recovering/Resolving]
  - Circulatory collapse [Recovering/Resolving]
  - Influenza [Recovering/Resolving]

NARRATIVE: CASE EVENT DATE: 20141226
